FAERS Safety Report 21935379 (Version 1)
Quarter: 2023Q1

REPORT INFORMATION
  Report Type: Spontaneous
  Country: US (occurrence: None)
  Receive Date: 20230131
  Receipt Date: 20230131
  Transmission Date: 20230418
  Serious: No
  Sender: FDA-Public Use
  Company Number: None

PATIENT
  Sex: Female

DRUGS (1)
  1. LUPRON DEPOT [Suspect]
     Active Substance: LEUPROLIDE ACETATE
     Indication: Uterine leiomyoma
     Dosage: 3.75MG EVERY 28 DAYS UNDER THE SKIN?
     Route: 058
     Dates: start: 202212

REACTIONS (2)
  - Device defective [None]
  - Drug dose omission by device [None]
